FAERS Safety Report 22217870 (Version 1)
Quarter: 2023Q2

REPORT INFORMATION
  Report Type: Spontaneous
  Country: JP (occurrence: JP)
  Receive Date: 20230417
  Receipt Date: 20230417
  Transmission Date: 20230721
  Serious: Yes (Other)
  Sender: FDA-Public Use
  Company Number: JP-BAYER-2022A071392

PATIENT
  Age: 75 Year
  Sex: Female

DRUGS (2)
  1. XARELTO [Suspect]
     Active Substance: RIVAROXABAN
     Indication: Atrial fibrillation
     Dosage: UNK
     Route: 048
     Dates: start: 2013
  2. PILSICAINIDE [Concomitant]
     Active Substance: PILSICAINIDE
     Indication: Atrial fibrillation
     Dosage: DAILY DOSE 150 MG
     Dates: start: 2013

REACTIONS (4)
  - Atrial fibrillation [Unknown]
  - Palpitations [Unknown]
  - Dizziness [Unknown]
  - Atrial tachycardia [Unknown]

NARRATIVE: CASE EVENT DATE: 20210101
